FAERS Safety Report 12280283 (Version 1)
Quarter: 2016Q2

REPORT INFORMATION
  Report Type: Spontaneous
  Country: PL (occurrence: PL)
  Receive Date: 20160419
  Receipt Date: 20160419
  Transmission Date: 20160815
  Serious: Yes (Hospitalization)
  Sender: FDA-Public Use
  Company Number: PL-ABBVIE-16K-129-1603880-00

PATIENT
  Age: 13 Year
  Sex: Male
  Weight: 32.6 kg

DRUGS (1)
  1. HUMIRA [Suspect]
     Active Substance: ADALIMUMAB
     Indication: CROHN^S DISEASE
     Route: 058
     Dates: start: 201303

REACTIONS (9)
  - Intestinal stenosis [Unknown]
  - Gastrointestinal necrosis [Unknown]
  - Gastrointestinal wall thickening [Unknown]
  - Arthralgia [Unknown]
  - Erosive oesophagitis [Unknown]
  - Gastrointestinal inflammation [Unknown]
  - Gastrointestinal mucosal disorder [Unknown]
  - Gastrointestinal perforation [Unknown]
  - Intestinal ulcer [Unknown]

NARRATIVE: CASE EVENT DATE: 201402
